FAERS Safety Report 16007628 (Version 2)
Quarter: 2019Q1

REPORT INFORMATION
  Report Type: Spontaneous
  Country: CN (occurrence: CN)
  Receive Date: 20190226
  Receipt Date: 20190301
  Transmission Date: 20190418
  Serious: Yes (Death)
  Sender: FDA-Public Use
  Company Number: CN-ASTRAZENECA-2019SE31226

PATIENT
  Age: 25723 Day
  Sex: Male
  Weight: 55 kg

DRUGS (2)
  1. SYMBICORT [Suspect]
     Active Substance: BUDESONIDE\FORMOTEROL FUMARATE DIHYDRATE
     Indication: CHRONIC OBSTRUCTIVE PULMONARY DISEASE
     Dosage: 320 UNK; 2 INHILATION IN THE MORNING AND 2 INHILATION IN THE EVENING
     Route: 055
     Dates: start: 20151025
  2. SYMBICORT [Suspect]
     Active Substance: BUDESONIDE\FORMOTEROL FUMARATE DIHYDRATE
     Indication: EMPHYSEMA
     Dosage: 320 UNK; 2 INHILATION IN THE MORNING AND 2 INHILATION IN THE EVENING
     Route: 055
     Dates: start: 20151025

REACTIONS (2)
  - Nasopharyngitis [Fatal]
  - Emphysema [Unknown]
